FAERS Safety Report 24768831 (Version 1)
Quarter: 2024Q4

REPORT INFORMATION
  Report Type: Spontaneous
  Country: GB (occurrence: GB)
  Receive Date: 20241224
  Receipt Date: 20241224
  Transmission Date: 20250115
  Serious: Yes (Other)
  Sender: TEVA
  Company Number: GB-MHRA-TPP4322029C10446243YC1734112170124

PATIENT
  Age: 47 Year
  Sex: Female
  Weight: 70 kg

DRUGS (5)
  1. RAMIPRIL [Suspect]
     Active Substance: RAMIPRIL
     Indication: Ill-defined disorder
     Route: 065
     Dates: start: 20241213
  2. ETHINYL ESTRADIOL\LEVONORGESTREL ACETATE [Concomitant]
     Active Substance: ETHINYL ESTRADIOL\LEVONORGESTREL ACETATE
     Indication: Ill-defined disorder
     Dosage: TAKE ONE DAILY FOR 21 DAYS OF EACH CYCLE AS DIR...
     Route: 065
     Dates: start: 20241024
  3. FEXOFENADINE [Concomitant]
     Active Substance: FEXOFENADINE HYDROCHLORIDE
     Indication: Ill-defined disorder
     Dosage: TAKE ONE DAILY, DAILY DOSE: 1 DOSAGE FORM DAILY
     Route: 065
     Dates: start: 20241212
  4. LEVOTHYROXINE [Concomitant]
     Active Substance: LEVOTHYROXINE
     Indication: Ill-defined disorder
     Dosage: TAKE ONE EACH MORNING, DAILY DOSE: 1 DOSAGE FORM DAILY
     Route: 065
     Dates: start: 20230509
  5. RAMIPRIL [Concomitant]
     Active Substance: RAMIPRIL
     Indication: Ill-defined disorder
     Dosage: TAKE ONE CAPSULE ONCE DAILY, DAILY DOSE: 1 DOSAGE FORM DAILY
     Route: 065
     Dates: start: 20241211

REACTIONS (1)
  - Swelling face [Recovered/Resolved]

NARRATIVE: CASE EVENT DATE: 20241213
